FAERS Safety Report 7491779-3 (Version None)
Quarter: 2011Q2

REPORT INFORMATION
  Report Type: 
  Country: None (occurrence: None)
  Receive Date: 20110519
  Receipt Date: 20090216
  Transmission Date: 20111010
  Serious: Yes (Death, Other)
  Sender: FDA-Public Use
  Company Number: US-BAYER-200913110NA

PATIENT
  Age: 70 Year
  Sex: Female
  Weight: 81.633 kg

DRUGS (13)
  1. ACETYLSALICYLIC ACID SRT [Concomitant]
     Dosage: DAILY
     Dates: start: 20060101
  2. FUROSEMIDE [Concomitant]
  3. CARDIOPLEGIA [Concomitant]
  4. DOPAMINE HCL [Concomitant]
  5. NORVASC [Concomitant]
  6. NITROGLYCERIN [Concomitant]
     Dosage: UNK
     Dates: start: 20060101
  7. INSULIN [INSULIN] [Concomitant]
     Dosage: 10 UNITS IN THE MORNING, 5 UNITS AT NIGHT
     Dates: start: 20060101
  8. TRASYLOL [Suspect]
     Indication: CORONARY ARTERY BYPASS
     Dosage: APROTININ BILLED 16-MAR-2006 AND 17TH
     Route: 042
     Dates: start: 20060317
  9. LISINOPRIL [Concomitant]
     Indication: BLOOD PRESSURE MANAGEMENT
     Dosage: UNK
     Dates: start: 20050101
  10. LASIX [Concomitant]
     Dosage: 40MG
     Dates: start: 20060101
  11. LIPITOR [Concomitant]
  12. GLUCOPHAGE [Concomitant]
  13. ARICEPT [Concomitant]
     Indication: DEMENTIA ALZHEIMER'S TYPE

REACTIONS (14)
  - RENAL IMPAIRMENT [None]
  - RENAL INJURY [None]
  - EMOTIONAL DISTRESS [None]
  - DEATH [None]
  - ANXIETY [None]
  - UNEVALUABLE EVENT [None]
  - ANHEDONIA [None]
  - STRESS [None]
  - MULTI-ORGAN FAILURE [None]
  - PAIN [None]
  - INJURY [None]
  - DEPRESSION [None]
  - RENAL FAILURE [None]
  - FEAR [None]
